FAERS Safety Report 5810593-5 (Version None)
Quarter: 2008Q3

REPORT INFORMATION
  Report Type: 
  Country: None (occurrence: None)
  Receive Date: 20080715
  Receipt Date: 20080710
  Transmission Date: 20090109
  Serious: Yes (Death)
  Sender: FDA-Public Use
  Company Number: US-PFIZER INC-2008057579

PATIENT
  Sex: Female

DRUGS (4)
  1. LIPITOR [Suspect]
     Indication: BLOOD CHOLESTEROL INCREASED
  2. LOPRESSOR [Concomitant]
     Indication: HYPERTENSION
  3. TRIAMTERENE [Concomitant]
  4. ZOFRAN [Concomitant]
     Indication: NAUSEA

REACTIONS (1)
  - COLON CANCER [None]
